FAERS Safety Report 11309476 (Version 1)
Quarter: 2015Q3

REPORT INFORMATION
  Report Type: Spontaneous
  Country: JP (occurrence: JP)
  Receive Date: 20150724
  Receipt Date: 20150724
  Transmission Date: 20151125
  Serious: Yes (Other)
  Sender: FDA-Public Use
  Company Number: JP-GLAXOSMITHKLINE-JP2015JPN104546

PATIENT
  Age: 70 Year

DRUGS (1)
  1. VOTRIENT [Suspect]
     Active Substance: PAZOPANIB HYDROCHLORIDE
     Indication: LIPOSARCOMA
     Dosage: UNK
     Route: 048

REACTIONS (5)
  - Liposarcoma [Unknown]
  - Hypertension [Unknown]
  - Malaise [Unknown]
  - Dysphonia [Unknown]
  - Decreased appetite [Unknown]
